FAERS Safety Report 23305363 (Version 1)
Quarter: 2023Q4

REPORT INFORMATION
  Report Type: Report from Study
  Country: CA (occurrence: CA)
  Receive Date: 20231218
  Receipt Date: 20231218
  Transmission Date: 20240109
  Serious: Yes (Death, Other)
  Sender: FDA-Public Use
  Company Number: CA-SANDOZ-SDZ2023CA068905

PATIENT
  Age: 58 Year
  Sex: Female

DRUGS (1)
  1. FULVESTRANT [Suspect]
     Active Substance: FULVESTRANT
     Indication: Product used for unknown indication
     Dosage: 250 MG ( N/A DOSE EVERY N/A N/A)
     Route: 065
     Dates: start: 20230130

REACTIONS (1)
  - Death [Fatal]

NARRATIVE: CASE EVENT DATE: 20230601
